FAERS Safety Report 6178345-7 (Version None)
Quarter: 2009Q2

REPORT INFORMATION
  Report Type: 
  Country: None (occurrence: None)
  Receive Date: 20090504
  Receipt Date: 20090427
  Transmission Date: 20091009
  Serious: Yes (Other)
  Sender: FDA-Public Use
  Company Number: US-SANOFI-SYNTHELABO-A03200901154

PATIENT
  Sex: Female
  Weight: 63.5 kg

DRUGS (1)
  1. PLAVIX [Suspect]
     Indication: THROMBOSIS PROPHYLAXIS
     Route: 048
     Dates: start: 20040101, end: 20070101

REACTIONS (4)
  - DRUG INEFFECTIVE [None]
  - JUGULAR VEIN THROMBOSIS [None]
  - PERIPHERAL VASCULAR DISORDER [None]
  - SUBCLAVIAN VEIN THROMBOSIS [None]
